FAERS Safety Report 16232957 (Version 1)
Quarter: 2019Q2

REPORT INFORMATION
  Report Type: Spontaneous
  Country: US (occurrence: US)
  Receive Date: 20190319
  Receipt Date: 20190319
  Transmission Date: 20190711
  Serious: Yes (Hospitalization, Disabling)
  Sender: FDA-Public Use
  Company Number: None

PATIENT
  Age: 74 Year
  Sex: Female
  Weight: 60.78 kg

DRUGS (7)
  1. HYDROCHLOROTHIAZIDE. [Concomitant]
     Active Substance: HYDROCHLOROTHIAZIDE
  2. VITAMIN C [Concomitant]
     Active Substance: ASCORBIC ACID
  3. CENTRUM SILVER [Concomitant]
     Active Substance: MINERALS\VITAMINS
  4. AZELASTINE NASAL SPRAY [Suspect]
     Active Substance: AZELASTINE
     Indication: ANTIALLERGIC THERAPY
     Dosage: STRENGTH 205 MCG OF AZELASTINE IN EACH 0.37 ML SPRAY .5 0.15%?2 SPRAYS EACH NOSTRIL
  5. METOPROLOL. [Concomitant]
     Active Substance: METOPROLOL
  6. LOSARTAN POTASSIUM. [Concomitant]
     Active Substance: LOSARTAN POTASSIUM
  7. BABY ASPIRIN [Concomitant]
     Active Substance: ASPIRIN

REACTIONS (6)
  - Nasal odour [None]
  - Parosmia [None]
  - Hypertension [None]
  - Nausea [None]
  - Headache [None]
  - Dyspnoea [None]

NARRATIVE: CASE EVENT DATE: 20190213
